FAERS Safety Report 5609751-4 (Version None)
Quarter: 2008Q1

REPORT INFORMATION
  Report Type: 
  Country: None (occurrence: None)
  Receive Date: 20080131
  Receipt Date: 20071019
  Transmission Date: 20080703
  Serious: No
  Sender: FDA-Public Use
  Company Number: US-BAYER-200713424BCC

PATIENT
  Age: 54 Year
  Sex: Female
  Weight: 59 kg

DRUGS (5)
  1. ALEVE COLD AND SINUS [Suspect]
     Indication: NASOPHARYNGITIS
     Dosage: AS USED: 220/120 MG  UNIT DOSE: 220 MG
     Route: 048
     Dates: start: 20071018
  2. LIPITOR [Concomitant]
  3. STORE BRAND ASPIRIN [Concomitant]
  4. STORE CALCIUM SUPPLEMENTS [Concomitant]
  5. STORE BRAND VITAMINS [Concomitant]

REACTIONS (1)
  - INITIAL INSOMNIA [None]
